FAERS Safety Report 16594759 (Version 1)
Quarter: 2019Q3

REPORT INFORMATION
  Report Type: Other
  Country: US (occurrence: US)
  Receive Date: 20190718
  Receipt Date: 20190718
  Transmission Date: 20191004
  Serious: No
  Sender: FDA-Public Use
  Company Number: US-SWEDISH ORPHAN BIOVITRUM-2019US0300

PATIENT
  Age: 74 Year
  Sex: Female

DRUGS (1)
  1. KINERET [Suspect]
     Active Substance: ANAKINRA
     Route: 058
     Dates: end: 20190131

REACTIONS (3)
  - Rash [Unknown]
  - Malaise [Unknown]
  - Pyrexia [Unknown]

NARRATIVE: CASE EVENT DATE: 20190203
